FAERS Safety Report 25589801 (Version 3)
Quarter: 2025Q3

REPORT INFORMATION
  Report Type: Report from Study
  Country: US (occurrence: US)
  Receive Date: 20250722
  Receipt Date: 20250905
  Transmission Date: 20251020
  Serious: Yes (Other)
  Sender: ABBVIE
  Company Number: US-ABBVIE-6378266

PATIENT
  Age: 77 Year
  Sex: Male

DRUGS (2)
  1. CREON [Suspect]
     Active Substance: PANCRELIPASE AMYLASE\PANCRELIPASE LIPASE\PANCRELIPASE PROTEASE
     Indication: Product used for unknown indication
     Dosage: END DATE: JUL 2025?TOOK ONE CAPSULE OF 36000 LIPASE UNIT WITH EACH MEAL.
     Route: 048
     Dates: start: 20250702
  2. CREON [Suspect]
     Active Substance: PANCRELIPASE AMYLASE\PANCRELIPASE LIPASE\PANCRELIPASE PROTEASE
     Indication: Product used for unknown indication
     Dosage: FIRST ADMIN DATE: JUL 2025?TOOK TWO CAPSULES WITH EACH MEAL.
     Route: 048
     Dates: end: 20250826

REACTIONS (3)
  - Intra-abdominal fluid collection [Unknown]
  - Neuroendocrine carcinoma metastatic [Unknown]
  - Drug ineffective [Unknown]

NARRATIVE: CASE EVENT DATE: 20250101
